FAERS Safety Report 19052820 (Version 1)
Quarter: 2021Q1

REPORT INFORMATION
  Report Type: Spontaneous
  Country: US (occurrence: US)
  Receive Date: 20210324
  Receipt Date: 20210324
  Transmission Date: 20210420
  Serious: No
  Sender: FDA-Public Use
  Company Number: US-009507513-2103USA004249

PATIENT
  Age: 15 Year
  Sex: Male

DRUGS (3)
  1. TEMODAR [Suspect]
     Active Substance: TEMOZOLOMIDE
     Indication: PINEAL PARENCHYMAL NEOPLASM MALIGNANT
     Dosage: UNK
     Route: 048
  2. BEVACIZUMAB. [Concomitant]
     Active Substance: BEVACIZUMAB
     Indication: PINEAL PARENCHYMAL NEOPLASM MALIGNANT
     Dosage: UNK
  3. IRINOTECAN [Concomitant]
     Active Substance: IRINOTECAN
     Indication: PINEAL PARENCHYMAL NEOPLASM MALIGNANT
     Dosage: UNK

REACTIONS (1)
  - Off label use [Unknown]
